FAERS Safety Report 23545511 (Version 1)
Quarter: 2024Q1

REPORT INFORMATION
  Report Type: Spontaneous
  Country: US (occurrence: US)
  Receive Date: 20240220
  Receipt Date: 20240220
  Transmission Date: 20240409
  Serious: Yes (Hospitalization, Other)
  Sender: FDA-Public Use
  Company Number: US-BAYER-2024A023584

PATIENT

DRUGS (1)
  1. AFRIN ORIGINAL NASAL [Suspect]
     Active Substance: OXYMETAZOLINE HYDROCHLORIDE
     Indication: Sinus disorder
     Dosage: UNK
     Route: 065

REACTIONS (4)
  - Hospitalisation [None]
  - Drug dependence [Unknown]
  - Hypertension [Unknown]
  - Sinus disorder [None]
